FAERS Safety Report 8520227-7 (Version None)
Quarter: 2012Q3

REPORT INFORMATION
  Report Type: 
  Country: None (occurrence: None)
  Receive Date: 20120719
  Receipt Date: 20120710
  Transmission Date: 20120928
  Serious: Yes (Other)
  Sender: FDA-Public Use
  Company Number: AU-JNJFOC-20120404877

PATIENT
  Sex: Female

DRUGS (9)
  1. STELARA [Suspect]
     Route: 058
     Dates: start: 20120130, end: 20120130
  2. METHOTREXATE [Suspect]
     Indication: PSORIASIS
     Route: 065
  3. STELARA [Suspect]
     Route: 058
     Dates: start: 20101201, end: 20101201
  4. STELARA [Suspect]
     Route: 058
     Dates: start: 20110223, end: 20110223
  5. STELARA [Suspect]
     Indication: PSORIASIS
     Route: 058
     Dates: start: 20101101, end: 20101101
  6. STELARA [Suspect]
     Route: 058
     Dates: start: 20110518, end: 20110518
  7. STELARA [Suspect]
     Route: 058
     Dates: start: 20110810, end: 20110810
  8. STELARA [Suspect]
     Route: 058
     Dates: start: 20111123, end: 20111123
  9. STELARA [Suspect]
     Route: 058
     Dates: start: 20120410, end: 20120410

REACTIONS (4)
  - PSORIASIS [None]
  - ASCITES [None]
  - HEPATIC CIRRHOSIS [None]
  - PRURITUS [None]
